FAERS Safety Report 20202424 (Version 1)
Quarter: 2021Q4

REPORT INFORMATION
  Report Type: Spontaneous
  Country: CN (occurrence: CN)
  Receive Date: 20211217
  Receipt Date: 20211217
  Transmission Date: 20220303
  Serious: Yes (Hospitalization)
  Sender: FDA-Public Use
  Company Number: CN-BAXTER-2021BAX040911

PATIENT
  Age: 30 Year
  Sex: Male
  Weight: 79 kg

DRUGS (6)
  1. IFOSFAMIDE [Suspect]
     Active Substance: IFOSFAMIDE
     Indication: Ewing^s sarcoma
     Dosage: IE REGIMEN: IFO 3.5G + NS 500ML; DAYS 1-5
     Route: 041
     Dates: start: 20211108, end: 20211112
  2. SODIUM CHLORIDE [Suspect]
     Active Substance: SODIUM CHLORIDE
     Indication: Medication dilution
     Dosage: IE REGIMEN: IFO 3.5G + NS 500ML; DAYS 1-5
     Route: 041
     Dates: start: 20211108, end: 20211112
  3. SODIUM CHLORIDE [Suspect]
     Active Substance: SODIUM CHLORIDE
     Dosage: IE REGIMEN: VP-16 100MG + NS 500ML; DAYS 1-5
     Route: 041
     Dates: start: 20211108, end: 20211112
  4. SODIUM CHLORIDE [Suspect]
     Active Substance: SODIUM CHLORIDE
     Dosage: IE REGIMEN: VP-16 95MG + NS 500ML; DAYS 1-5
     Route: 041
     Dates: start: 20211108, end: 20211112
  5. ETOPOSIDE [Suspect]
     Active Substance: ETOPOSIDE
     Indication: Ewing^s sarcoma
     Dosage: 100MG + NS 500ML QD IVGTT
     Route: 041
     Dates: start: 20211108, end: 20211112
  6. ETOPOSIDE [Suspect]
     Active Substance: ETOPOSIDE
     Dosage: 95MG + NS 500ML QD IVGTT
     Route: 041
     Dates: start: 20211108, end: 20211112

REACTIONS (1)
  - Myelosuppression [Recovering/Resolving]

NARRATIVE: CASE EVENT DATE: 20211119
